FAERS Safety Report 8578576-2 (Version None)
Quarter: 2012Q3

REPORT INFORMATION
  Report Type: 
  Country: None (occurrence: None)
  Receive Date: 20120808
  Receipt Date: 20120730
  Transmission Date: 20120928
  Serious: Yes (Hospitalization)
  Sender: FDA-Public Use
  Company Number: US-BRISTOL-MYERS SQUIBB COMPANY-16819161

PATIENT
  Age: 68 Year
  Sex: Male
  Weight: 122 kg

DRUGS (10)
  1. DYAZIDE [Concomitant]
     Dosage: 37.5
  2. PLAVIX [Concomitant]
  3. TIZANIDINE HYDROCHLORIDE [Concomitant]
  4. ORENCIA [Suspect]
     Indication: RHEUMATOID ARTHRITIS
     Dosage: LAST INF: 6JUL12
     Route: 042
  5. ASPIRIN [Concomitant]
  6. REQUIP [Concomitant]
  7. LISINOPRIL [Suspect]
  8. NORVASC [Concomitant]
  9. ATENOLOL [Concomitant]
  10. PRAVASTATIN [Concomitant]

REACTIONS (4)
  - COUGH [None]
  - CARDIAC DISORDER [None]
  - FATIGUE [None]
  - DIZZINESS [None]
